FAERS Safety Report 16661492 (Version 5)
Quarter: 2020Q2

REPORT INFORMATION
  Report Type: Spontaneous
  Country: US (occurrence: US)
  Receive Date: 20190802
  Receipt Date: 20200619
  Transmission Date: 20200713
  Serious: No
  Sender: FDA-Public Use
  Company Number: US-PFIZER INC-2018406221

PATIENT
  Age: 72 Year
  Sex: Female
  Weight: 54.43 kg

DRUGS (6)
  1. LYRICA [Suspect]
     Active Substance: PREGABALIN
     Indication: PAIN
     Dosage: 100 MG, 2X/DAY (1 CAPSULE 2 TIMES A DAY)
  2. ZANAFLEX [Concomitant]
     Active Substance: TIZANIDINE HYDROCHLORIDE
     Indication: PAIN
     Dosage: 4 MG, 1X/DAY
  3. LYRICA [Suspect]
     Active Substance: PREGABALIN
     Indication: FIBROMYALGIA
     Dosage: 75 MG, 2X/DAY
  4. ZOLOFT [Concomitant]
     Active Substance: SERTRALINE HYDROCHLORIDE
     Indication: ANXIETY
     Dosage: 100 MG, 2X/DAY
  5. LYRICA [Suspect]
     Active Substance: PREGABALIN
     Dosage: 50 MG, UNK
  6. ZANAFLEX [Concomitant]
     Active Substance: TIZANIDINE HYDROCHLORIDE
     Indication: MUSCLE RELAXANT THERAPY

REACTIONS (10)
  - Formication [Unknown]
  - Paraesthesia [Unknown]
  - Pruritus [Unknown]
  - Restless legs syndrome [Unknown]
  - Abdominal pain upper [Unknown]
  - Irritability [Unknown]
  - Withdrawal syndrome [Not Recovered/Not Resolved]
  - Feeling of body temperature change [Unknown]
  - Hyperhidrosis [Unknown]
  - Flatulence [Unknown]

NARRATIVE: CASE EVENT DATE: 201907
